FAERS Safety Report 13075045 (Version 2)
Quarter: 2017Q1

REPORT INFORMATION
  Report Type: Spontaneous
  Country: US (occurrence: US)
  Receive Date: 20161230
  Receipt Date: 20170103
  Transmission Date: 20170428
  Serious: No
  Sender: FDA-Public Use
  Company Number: US-BAYER-2016-247111

PATIENT
  Age: 41 Year
  Sex: Female
  Weight: 54.42 kg

DRUGS (3)
  1. CLARITIN-D 24 HOUR [Suspect]
     Active Substance: LORATADINE\PSEUDOEPHEDRINE SULFATE
     Indication: NASOPHARYNGITIS
  2. CLARITIN-D 24 HOUR [Suspect]
     Active Substance: LORATADINE\PSEUDOEPHEDRINE SULFATE
     Indication: HYPERSENSITIVITY
     Dosage: UNK UNK, ONCE
     Route: 048
     Dates: start: 20161219, end: 20161219
  3. IBUPROFEN. [Concomitant]
     Active Substance: IBUPROFEN
     Dosage: UNK

REACTIONS (4)
  - Product use issue [Unknown]
  - Product use issue [Recovered/Resolved]
  - Agitation [Unknown]
  - Hypersomnia [Unknown]

NARRATIVE: CASE EVENT DATE: 20161219
